FAERS Safety Report 7931395-X (Version None)
Quarter: 2011Q4

REPORT INFORMATION
  Report Type: 
  Country: None (occurrence: None)
  Receive Date: 20111121
  Receipt Date: 20111118
  Transmission Date: 20120403
  Serious: Yes (Other)
  Sender: FDA-Public Use
  Company Number: DE-GILEAD-2011-0044133

PATIENT
  Age: 63 Year
  Sex: Male

DRUGS (2)
  1. VIREAD [Suspect]
     Indication: HEPATITIS B
  2. XELODA [Concomitant]
     Indication: MALIGNANT ANORECTAL NEOPLASM

REACTIONS (3)
  - DRUG INEFFECTIVE [None]
  - ALPHA 1 FOETOPROTEIN INCREASED [None]
  - HEPATITIS B DNA INCREASED [None]
